FAERS Safety Report 15296512 (Version 1)
Quarter: 2018Q3

REPORT INFORMATION
  Report Type: Spontaneous
  Country: US (occurrence: US)
  Receive Date: 20180807
  Receipt Date: 20180807
  Transmission Date: 20181010
  Serious: No
  Sender: FDA-Public Use
  Company Number: None

PATIENT
  Age: 86 Year
  Sex: Female
  Weight: 52.16 kg

DRUGS (12)
  1. BLEOMYCIN [Concomitant]
     Active Substance: BLEOMYCIN SULFATE
  2. ARAD Z [Concomitant]
  3. VITAMIN C [Concomitant]
     Active Substance: ASCORBIC ACID
  4. TYLENOL [Concomitant]
     Active Substance: ACETAMINOPHEN
  5. ATORVASTATIN [Concomitant]
     Active Substance: ATORVASTATIN
  6. BONVITE [Concomitant]
  7. MIRALAX [Concomitant]
     Active Substance: POLYETHYLENE GLYCOL 3350
  8. IPRATROPIUM [Concomitant]
     Active Substance: IPRATROPIUM
  9. TOLTERODINE TARTRATE ER 2MF CP24 [Suspect]
     Active Substance: TOLTERODINE TARTRATE
     Indication: PROPHYLAXIS URINARY TRACT INFECTION
     Route: 048
     Dates: start: 20180719, end: 20180724
  10. CALCIUM [Concomitant]
     Active Substance: CALCIUM
  11. AMLODIPINE BESYLATE. [Concomitant]
     Active Substance: AMLODIPINE BESYLATE
  12. MAGNESIUM [Concomitant]
     Active Substance: MAGNESIUM

REACTIONS (3)
  - Oral pain [None]
  - Oral discharge [None]
  - Swollen tongue [None]

NARRATIVE: CASE EVENT DATE: 20180724
